FAERS Safety Report 25005621 (Version 1)
Quarter: 2025Q1

REPORT INFORMATION
  Report Type: Spontaneous
  Country: BR (occurrence: BR)
  Receive Date: 20250224
  Receipt Date: 20250224
  Transmission Date: 20250408
  Serious: Yes (Hospitalization, Other)
  Sender: SANDOZ
  Company Number: BR-SANDOZ-SDZ2025BR010644

PATIENT
  Age: 45 Year
  Sex: Female

DRUGS (1)
  1. HYRIMOZ [Suspect]
     Active Substance: ADALIMUMAB-ADAZ
     Indication: Crohn^s disease
     Dosage: UNK UNK, Q2W
     Route: 065
     Dates: start: 20230101, end: 202307

REACTIONS (6)
  - Crohn^s disease [Not Recovered/Not Resolved]
  - Pertussis [Recovered/Resolved]
  - Cardiac arrest [Unknown]
  - Pneumonia [Recovered/Resolved]
  - Herpes zoster [Recovered/Resolved]
  - Asthma [Recovered/Resolved]

NARRATIVE: CASE EVENT DATE: 20241001
